FAERS Safety Report 6544035-1 (Version None)
Quarter: 2010Q1

REPORT INFORMATION
  Report Type: 
  Country: None (occurrence: None)
  Receive Date: 20100119
  Receipt Date: 20100119
  Transmission Date: 20100710
  Serious: Yes (Other)
  Sender: FDA-Public Use
  Company Number: None

PATIENT
  Age: 55 Year
  Sex: Male
  Weight: 154.223 kg

DRUGS (2)
  1. ROLAIDS EXTRA STRENGTH FRUIT MCNEIL [Suspect]
     Indication: DYSPEPSIA
     Dosage: 3 TO TABLETS AS NEEDED PO
     Route: 048
     Dates: start: 20100104, end: 20100110
  2. ROLAIDS EXTRA STRENGTH FRUIT MCNEIL [Suspect]
     Indication: DYSPEPSIA
     Dosage: 3 TO 4 TABLETS AS NEEDED PO
     Route: 048
     Dates: start: 20100110, end: 20100115

REACTIONS (4)
  - ABDOMINAL DISCOMFORT [None]
  - DIARRHOEA [None]
  - DYSPEPSIA [None]
  - PRODUCT QUALITY ISSUE [None]
